FAERS Safety Report 13721372 (Version 2)
Quarter: 2017Q3

REPORT INFORMATION
  Report Type: Spontaneous
  Country: GB (occurrence: GB)
  Receive Date: 20170706
  Receipt Date: 20170711
  Transmission Date: 20171127
  Serious: Yes (Hospitalization)
  Sender: FDA-Public Use
  Company Number: PHFR2017GB005168

PATIENT
  Age: 77 Year
  Sex: Male

DRUGS (2)
  1. SIMVASTATIN. [Suspect]
     Active Substance: SIMVASTATIN
     Indication: PRODUCT USED FOR UNKNOWN INDICATION
     Route: 065
  2. CICLOSPORIN [Interacting]
     Active Substance: CYCLOSPORINE
     Indication: PRODUCT USED FOR UNKNOWN INDICATION
     Route: 065
     Dates: start: 20170103

REACTIONS (2)
  - Myopathy [Unknown]
  - Labelled drug-drug interaction medication error [Unknown]

NARRATIVE: CASE EVENT DATE: 20170224
